FAERS Safety Report 11156759 (Version 2)
Quarter: 2015Q3

REPORT INFORMATION
  Report Type: Spontaneous
  Country: JP (occurrence: JP)
  Receive Date: 20150602
  Receipt Date: 20150724
  Transmission Date: 20151125
  Serious: Yes (Hospitalization)
  Sender: FDA-Public Use
  Company Number: JP-009507513-1506JPN000481

PATIENT
  Age: 66 Year
  Sex: Female
  Weight: 44 kg

DRUGS (9)
  1. COAHIBITOR [Suspect]
     Active Substance: NAFAMOSTAT MESYLATE
     Indication: ANTICOAGULANT THERAPY
     Dosage: 120 MG, Q3W
     Route: 041
     Dates: start: 20150513, end: 20150522
  2. BAYASPIRIN [Concomitant]
     Active Substance: ASPIRIN
     Dosage: 100 MG, QD
     Route: 048
  3. ALINAMIN [Concomitant]
     Dosage: 50 MG, QD
     Route: 048
  4. SULPERAZON (CEFOPERAZONE SODIUM (+) SULBACTAM SODIUM) [Concomitant]
     Dosage: UNK
     Dates: end: 20150510
  5. [COMPOSITION UNSPECIFIED] [Concomitant]
     Active Substance: UNSPECIFIED INGREDIENT
     Dosage: 25 MG, QD
     Route: 048
  6. CUBICIN [Suspect]
     Active Substance: DAPTOMYCIN
     Indication: DEVICE RELATED INFECTION
     Dosage: 350 MG, QD
     Route: 041
     Dates: start: 20150507, end: 20150522
  7. CORTRIL [Concomitant]
     Active Substance: HYDROCORTISONE
     Indication: ADRENAL DISORDER
     Dosage: 10 MG, QD
     Route: 048
  8. UNASYN S [Suspect]
     Active Substance: AMPICILLIN SODIUM\SULBACTAM SODIUM
     Indication: DEVICE RELATED INFECTION
     Dosage: 3 G, QD
     Route: 041
     Dates: start: 20150507, end: 20150510
  9. METHYCOBAL [Concomitant]
     Active Substance: METHYLCOBALAMIN
     Dosage: 500 MICROGRAM, BID
     Route: 048

REACTIONS (4)
  - Neutrophil count increased [Unknown]
  - Neutrophil count increased [Recovered/Resolved]
  - Neutrophil count decreased [Recovering/Resolving]
  - White blood cell count decreased [Unknown]

NARRATIVE: CASE EVENT DATE: 20150507
